FAERS Safety Report 8858927 (Version 3)
Quarter: 2013Q1

REPORT INFORMATION
  Report Type: Spontaneous
  Country: US (occurrence: US)
  Receive Date: 20121024
  Receipt Date: 20130123
  Transmission Date: 20140127
  Serious: No
  Sender: FDA-Public Use
  Company Number: US-009507513-1210USA006904

PATIENT
  Age: 51 None
  Sex: Female
  Weight: 69.39 kg

DRUGS (1)
  1. PEGINTRON [Suspect]
     Dosage: 120 MICROGRAM, QW
     Route: 058
     Dates: start: 201209

REACTIONS (4)
  - Anaemia [Recovered/Resolved]
  - Drug dose omission [Unknown]
  - Product dosage form issue [Unknown]
  - Product quality issue [Unknown]
